FAERS Safety Report 17351453 (Version 4)
Quarter: 2020Q1

REPORT INFORMATION
  Report Type: Report from Study
  Country: CA (occurrence: CA)
  Receive Date: 20200130
  Receipt Date: 20200324
  Transmission Date: 20200409
  Serious: Yes (Hospitalization, Other)
  Sender: FDA-Public Use
  Company Number: CA-JNJFOC-20191042771

PATIENT
  Age: 56 Year
  Sex: Male
  Weight: 146.6 kg

DRUGS (23)
  1. STELARA [Suspect]
     Active Substance: USTEKINUMAB
     Indication: PSORIASIS
     Route: 058
  2. STELARA [Suspect]
     Active Substance: USTEKINUMAB
     Route: 058
  3. ESCITALOPRAM [Concomitant]
     Active Substance: ESCITALOPRAM OXALATE
  4. OXYCODONE [Concomitant]
     Active Substance: OXYCODONE
  5. FUROSEMIDE. [Concomitant]
     Active Substance: FUROSEMIDE
  6. FOLIC ACID. [Concomitant]
     Active Substance: FOLIC ACID
  7. SYMBICORT [Concomitant]
     Active Substance: BUDESONIDE\FORMOTEROL FUMARATE DIHYDRATE
  8. AMLODIPINE [Concomitant]
     Active Substance: AMLODIPINE BESYLATE
  9. LEVTIRACETAM [Concomitant]
  10. CETIRIZINE [Concomitant]
     Active Substance: CETIRIZINE HYDROCHLORIDE
  11. VENTOLIN [Concomitant]
     Active Substance: ALBUTEROL SULFATE
  12. PANTOPRAZOLE [Concomitant]
     Active Substance: PANTOPRAZOLE
  13. METHOTREXATE. [Concomitant]
     Active Substance: METHOTREXATE
  14. NABILONE [Concomitant]
     Active Substance: NABILONE
  15. SPIRIVA [Concomitant]
     Active Substance: TIOTROPIUM BROMIDE MONOHYDRATE
  16. BUPROPRION [Concomitant]
     Active Substance: BUPROPION
  17. PRAMEPEXOLE [Concomitant]
  18. LORAZEPAM. [Concomitant]
     Active Substance: LORAZEPAM
  19. CLINDAMYCIN. [Concomitant]
     Active Substance: CLINDAMYCIN
  20. GABAPENTIN. [Concomitant]
     Active Substance: GABAPENTIN
  21. TRAZODONE [Concomitant]
     Active Substance: TRAZODONE HYDROCHLORIDE
  22. LORAZEPAM. [Concomitant]
     Active Substance: LORAZEPAM
  23. LEVETIRACETAM. [Concomitant]
     Active Substance: LEVETIRACETAM

REACTIONS (8)
  - Tooth fracture [Unknown]
  - Drug ineffective [Unknown]
  - Seizure [Recovering/Resolving]
  - Dyspnoea [Unknown]
  - Psoriasis [Not Recovered/Not Resolved]
  - Pyrexia [Unknown]
  - Meniscus injury [Not Recovered/Not Resolved]
  - Chest pain [Unknown]

NARRATIVE: CASE EVENT DATE: 202001
